FAERS Safety Report 17705511 (Version 2)
Quarter: 2020Q4

REPORT INFORMATION
  Report Type: Spontaneous
  Country: FR (occurrence: FR)
  Receive Date: 20200424
  Receipt Date: 20201216
  Transmission Date: 20210113
  Serious: Yes (Hospitalization, Other)
  Sender: FDA-Public Use
  Company Number: NVSC2020FR108514

PATIENT
  Age: 58 Year
  Sex: Male

DRUGS (1)
  1. DOXYCYCLINE. [Suspect]
     Active Substance: DOXYCYCLINE
     Indication: CHLAMYDIAL INFECTION
     Dosage: 1 SINGLE TAKE
     Route: 048

REACTIONS (2)
  - Fixed eruption [Recovered/Resolved]
  - Symmetrical drug-related intertriginous and flexural exanthema [Recovered/Resolved]
